FAERS Safety Report 9567862 (Version 2)
Quarter: 2013Q3

REPORT INFORMATION
  Report Type: Spontaneous
  Country: US (occurrence: US)
  Receive Date: 20130930
  Receipt Date: 20130930
  Transmission Date: 20140515
  Serious: No
  Sender: FDA-Public Use
  Company Number: US-AMGEN-USASP2013011529

PATIENT
  Age: 65 Year
  Sex: Female
  Weight: 74 kg

DRUGS (14)
  1. ENBREL [Suspect]
     Indication: RHEUMATOID ARTHRITIS
     Dosage: 50 MG, QWK
     Dates: start: 20121101, end: 20130121
  2. CALCIUM [Concomitant]
     Dosage: UNK
  3. CENTRUM                            /07499601/ [Concomitant]
     Dosage: UNK
  4. ETODOLAC [Concomitant]
     Dosage: UNK
  5. FISH OIL [Concomitant]
     Dosage: UNK
  6. IBUPROFEN [Concomitant]
     Dosage: UNK
  7. LISINOPRIL [Concomitant]
     Dosage: UNK
  8. METFORMIN [Concomitant]
     Dosage: UNK
  9. PREDNISONE [Concomitant]
     Dosage: UNK
  10. TRAMADOL [Concomitant]
     Dosage: UNK
  11. VITAMIN B [Concomitant]
     Dosage: UNK
  12. VITAMIN D                          /00107901/ [Concomitant]
     Dosage: UNK
  13. WELCHOL [Concomitant]
     Dosage: UNK
  14. HUMIRA [Concomitant]
     Dosage: UNK
     Dates: end: 201211

REACTIONS (5)
  - Musculoskeletal pain [Unknown]
  - Injection site swelling [Recovered/Resolved]
  - Injection site reaction [Recovered/Resolved]
  - Injection site erythema [Recovered/Resolved]
  - Injection site hypersensitivity [Unknown]
